FAERS Safety Report 21738109 (Version 1)
Quarter: 2022Q4

REPORT INFORMATION
  Report Type: Other
  Country: US (occurrence: None)
  Receive Date: 20221216
  Receipt Date: 20221216
  Transmission Date: 20230113
  Serious: Yes (Disabling)
  Sender: FDA-Public Use
  Company Number: US-ROCHE-3144295

PATIENT
  Age: 78 Year
  Sex: Female

DRUGS (1)
  1. ERIVEDGE [Suspect]
     Active Substance: VISMODEGIB
     Indication: Basal cell carcinoma
     Dosage: TAKE 1 CAPSULE BY MOUTH BY MOUTH EVERY DAY
     Route: 048

REACTIONS (7)
  - Ill-defined disorder [Unknown]
  - Asthenia [Unknown]
  - Fall [Unknown]
  - Ageusia [Unknown]
  - Muscle spasms [Unknown]
  - Alopecia [Unknown]
  - Feeling abnormal [Unknown]
